FAERS Safety Report 12714730 (Version 1)
Quarter: 2016Q3

REPORT INFORMATION
  Report Type: Report from Study
  Country: BR (occurrence: BR)
  Receive Date: 20160905
  Receipt Date: 20160905
  Transmission Date: 20161109
  Serious: Yes (Hospitalization)
  Sender: FDA-Public Use
  Company Number: BR-ABBVIE-16K-020-1714733-00

PATIENT
  Age: 49 Year
  Sex: Female
  Weight: 54 kg

DRUGS (8)
  1. NOVALGIN [Suspect]
     Active Substance: METAMIZOLE SODIUM
     Indication: PYREXIA
     Dosage: 2 OR 3 TIMES DAILY
     Route: 042
     Dates: start: 20160601, end: 20160604
  2. MAGNESIUM [Concomitant]
     Active Substance: MAGNESIUM
     Indication: IMMUNODEFICIENCY
     Route: 042
     Dates: start: 20160620, end: 20160624
  3. ACETYLCYSTEINE. [Concomitant]
     Active Substance: ACETYLCYSTEINE
     Indication: IMMUNODEFICIENCY
     Route: 042
     Dates: start: 20160620, end: 20160624
  4. CALCIUM [Concomitant]
     Active Substance: CALCIUM
     Indication: IMMUNODEFICIENCY
     Route: 042
     Dates: start: 20160620, end: 20160624
  5. VITAMIN C [Concomitant]
     Active Substance: ASCORBIC ACID
     Indication: IMMUNODEFICIENCY
     Route: 042
     Dates: start: 20160620, end: 20160624
  6. HUMIRA [Suspect]
     Active Substance: ADALIMUMAB
     Indication: COLITIS ULCERATIVE
     Dosage: LOADING DOSE, WEEK 0
     Route: 058
     Dates: start: 20160328, end: 20160328
  7. HUMIRA [Suspect]
     Active Substance: ADALIMUMAB
     Route: 058
     Dates: start: 2016, end: 2016
  8. HUMIRA [Suspect]
     Active Substance: ADALIMUMAB
     Route: 058
     Dates: start: 20160620

REACTIONS (20)
  - Somnolence [Recovering/Resolving]
  - Injection site mass [Recovered/Resolved]
  - Drug ineffective [Not Recovered/Not Resolved]
  - Scar pain [Unknown]
  - Injection site pain [Unknown]
  - Alopecia [Unknown]
  - Infection [Recovering/Resolving]
  - Frequent bowel movements [Not Recovered/Not Resolved]
  - Injection site bruising [Recovered/Resolved]
  - Nausea [Unknown]
  - Diarrhoea [Unknown]
  - Gallbladder perforation [Recovering/Resolving]
  - Pyrexia [Recovering/Resolving]
  - Abnormal faeces [Unknown]
  - Injection site pain [Recovered/Resolved]
  - Injection site bruising [Recovered/Resolved]
  - Hypotension [Unknown]
  - Alopecia [Recovered/Resolved]
  - Abdominal pain [Unknown]
  - Injection site inflammation [Unknown]

NARRATIVE: CASE EVENT DATE: 2016
